FAERS Safety Report 26077799 (Version 1)
Quarter: 2025Q4

REPORT INFORMATION
  Report Type: Spontaneous
  Country: US (occurrence: US)
  Receive Date: 20251122
  Receipt Date: 20251122
  Transmission Date: 20260118
  Serious: Yes (Other)
  Sender: MDD OPERATIONS
  Company Number: US-MDD US Operations-MDD202508-003406

PATIENT
  Age: 68 Year
  Sex: Male

DRUGS (2)
  1. ONAPGO [Suspect]
     Active Substance: APOMORPHINE HYDROCHLORIDE
     Indication: Parkinson^s disease
     Dosage: FOR 16 HOURS A DAY
     Dates: start: 20250826
  2. ONAPGO [Suspect]
     Active Substance: APOMORPHINE HYDROCHLORIDE
     Indication: Dyskinesia
     Dosage: FOR 16 HOURS A DAY?LOT NUMBER AND EXPIRATION DATE FOR INFUSION SET: 6012337 AND 01/FEB/2028
     Dates: start: 2025

REACTIONS (7)
  - Hallucination [Not Recovered/Not Resolved]
  - Nausea [Recovered/Resolved]
  - Condition aggravated [Recovered/Resolved]
  - Device defective [Unknown]
  - Device breakage [Unknown]
  - Device failure [Unknown]
  - Device use issue [Unknown]
